FAERS Safety Report 6721141-X (Version None)
Quarter: 2010Q2

REPORT INFORMATION
  Report Type: 
  Country: None (occurrence: None)
  Receive Date: 20100510
  Receipt Date: 20091029
  Transmission Date: 20101027
  Serious: Yes (Death)
  Sender: FDA-Public Use
  Company Number: 2009AP003659

PATIENT
  Age: 77 Year
  Sex: Female

DRUGS (1)
  1. AMLODIPINE BESYLATE [Suspect]
     Indication: HYPERTENSION
     Dosage: 5 MG; QD
     Dates: start: 20060530

REACTIONS (17)
  - ARRHYTHMIA [None]
  - DIZZINESS [None]
  - DRUG LEVEL INCREASED [None]
  - FIBULA FRACTURE [None]
  - HUMERUS FRACTURE [None]
  - HYPOTENSION [None]
  - LOWER LIMB FRACTURE [None]
  - PELVIC FRACTURE [None]
  - RENAL CYST [None]
  - RIB FRACTURE [None]
  - ROAD TRAFFIC ACCIDENT [None]
  - SKULL FRACTURE [None]
  - SKULL FRACTURED BASE [None]
  - STERNAL FRACTURE [None]
  - TRAUMATIC BRAIN INJURY [None]
  - TRAUMATIC LIVER INJURY [None]
  - TRAUMATIC LUNG INJURY [None]
